FAERS Safety Report 18691356 (Version 1)
Quarter: 2021Q1

REPORT INFORMATION
  Report Type: Spontaneous
  Country: US (occurrence: US)
  Receive Date: 20210101
  Receipt Date: 20210101
  Transmission Date: 20210419
  Serious: No
  Sender: FDA-Public Use
  Company Number: US-BAUSCH-BL-2020-033451

PATIENT
  Sex: Male

DRUGS (4)
  1. SOOTHE XP [Suspect]
     Active Substance: LIGHT MINERAL OIL\MINERAL OIL
     Indication: EYE LUBRICATION THERAPY
     Dosage: 3 TO 4 TIMES DAILY IN BOTH EYES
     Route: 047
     Dates: start: 20200724, end: 20201104
  2. TIMOLOL. [Concomitant]
     Active Substance: TIMOLOL
     Indication: PRODUCT USED FOR UNKNOWN INDICATION
     Dates: start: 2017
  3. BRIMONIDINE TARTRATE OPHTHALMIC SOLUTION 0.2% [Suspect]
     Active Substance: BRIMONIDINE TARTRATE
     Indication: INTRAOCULAR PRESSURE INCREASED
     Route: 065
     Dates: start: 202008
  4. ROCKLATAN [Concomitant]
     Active Substance: LATANOPROST\NETARSUDIL MESYLATE
     Indication: PRODUCT USED FOR UNKNOWN INDICATION
     Dates: start: 202007

REACTIONS (6)
  - Intraocular pressure increased [Recovering/Resolving]
  - Eye irritation [Unknown]
  - Ocular hyperaemia [Unknown]
  - Expired product administered [Unknown]
  - Ocular discomfort [Unknown]
  - Lacrimation increased [Unknown]

NARRATIVE: CASE EVENT DATE: 2020
